FAERS Safety Report 20350195 (Version 1)
Quarter: 2022Q1

REPORT INFORMATION
  Report Type: Spontaneous
  Country: US (occurrence: None)
  Receive Date: 20220117
  Receipt Date: 20220117
  Transmission Date: 20220424
  Serious: Yes (Death)
  Sender: FDA-Public Use
  Company Number: None

PATIENT
  Age: 53 Year
  Sex: Male
  Weight: 54.9 kg

DRUGS (3)
  1. PYRIMETHAMINE [Suspect]
     Active Substance: PYRIMETHAMINE
     Indication: HIV infection
     Dosage: FREQUENCY : DAILY;?
     Route: 048
  2. Sulfadiazine 500mg [Concomitant]
     Dates: start: 20211207, end: 20211226
  3. LEUCOVORIN CALCIUM [Concomitant]
     Active Substance: LEUCOVORIN CALCIUM
     Dates: start: 20211207, end: 20211226

REACTIONS (1)
  - Death [None]

NARRATIVE: CASE EVENT DATE: 20211226
